FAERS Safety Report 17160313 (Version 4)
Quarter: 2020Q2

REPORT INFORMATION
  Report Type: Spontaneous
  Country: US (occurrence: US)
  Receive Date: 20191216
  Receipt Date: 20200408
  Transmission Date: 20200713
  Serious: Yes (Hospitalization)
  Sender: FDA-Public Use
  Company Number: US-PFIZER INC-2019542511

PATIENT
  Age: 67 Year
  Sex: Female
  Weight: 55 kg

DRUGS (12)
  1. XELJANZ [Suspect]
     Active Substance: TOFACITINIB CITRATE
     Indication: DRY EYE
  2. BRILINTA [Concomitant]
     Active Substance: TICAGRELOR
     Dosage: 60 MG, UNK
  3. XELJANZ [Suspect]
     Active Substance: TOFACITINIB CITRATE
     Indication: IMMUNE SYSTEM DISORDER
     Dosage: 15 MG, UNK
     Dates: start: 201412
  4. XELJANZ [Suspect]
     Active Substance: TOFACITINIB CITRATE
     Indication: TRIGEMINAL NEURALGIA
     Dosage: 5 MG, UNK
     Dates: start: 2019
  5. XELJANZ [Suspect]
     Active Substance: TOFACITINIB CITRATE
     Indication: OSTEOARTHRITIS
  6. ASPIRIN 81 [Concomitant]
     Active Substance: ASPIRIN
     Dosage: 81 MG, UNK
  7. XELJANZ [Suspect]
     Active Substance: TOFACITINIB CITRATE
     Indication: GASTROOESOPHAGEAL REFLUX DISEASE
  8. LIPITOR [Concomitant]
     Active Substance: ATORVASTATIN CALCIUM
     Dosage: 10 MG, UNK
  9. LYRICA [Concomitant]
     Active Substance: PREGABALIN
     Dosage: 50 MG, UNK
  10. XELJANZ [Suspect]
     Active Substance: TOFACITINIB CITRATE
     Indication: RHEUMATOID ARTHRITIS
     Dosage: 5 MG, DAILY
     Route: 048
  11. XELJANZ [Suspect]
     Active Substance: TOFACITINIB CITRATE
     Indication: POLYNEUROPATHY
  12. XELJANZ [Suspect]
     Active Substance: TOFACITINIB CITRATE
     Indication: ASTHMA

REACTIONS (6)
  - Nail growth abnormal [Not Recovered/Not Resolved]
  - Product use issue [Unknown]
  - Off label use [Unknown]
  - Hair growth abnormal [Not Recovered/Not Resolved]
  - Product dose omission [Unknown]
  - Drug ineffective [Not Recovered/Not Resolved]

NARRATIVE: CASE EVENT DATE: 201412
